FAERS Safety Report 4522046-5 (Version None)
Quarter: 2004Q4

REPORT INFORMATION
  Report Type: 
  Country: None (occurrence: None)
  Receive Date: 20041209
  Receipt Date: 20041110
  Transmission Date: 20050328
  Serious: Yes (Other)
  Sender: FDA-Public Use
  Company Number: JP-JNJFOC-20041200341

PATIENT
  Age: 62 Year
  Sex: Male

DRUGS (3)
  1. ITRIZOLE [Suspect]
     Indication: ONYCHOMYCOSIS
     Route: 049
  2. BENIDIPINE HYDROCHLORIDE [Interacting]
     Indication: DRUG USE FOR UNKNOWN INDICATION
     Route: 065
  3. AMINO ACID PREPARATION [Concomitant]
     Indication: PARENTERAL NUTRITION
     Route: 065

REACTIONS (2)
  - BLOOD PRESSURE DECREASED [None]
  - DRUG INTERACTION [None]
